FAERS Safety Report 5582768-4 (Version None)
Quarter: 2008Q1

REPORT INFORMATION
  Report Type: 
  Country: None (occurrence: None)
  Receive Date: 20080107
  Receipt Date: 20071210
  Transmission Date: 20080703
  Serious: No
  Sender: FDA-Public Use
  Company Number: US-BOEHRINGER INGELHEIM PHARMACEUTICALS, INC.-2007-BP-24478BP

PATIENT
  Age: 70 Year
  Sex: Female

DRUGS (3)
  1. ATROVENT HFA [Suspect]
     Route: 055
  2. XOPENEX HFA [Suspect]
  3. ALBUTEROL [Concomitant]

REACTIONS (2)
  - HYPERSENSITIVITY [None]
  - NAUSEA [None]
